FAERS Safety Report 13897776 (Version 1)
Quarter: 2017Q3

REPORT INFORMATION
  Report Type: Spontaneous
  Country: US (occurrence: None)
  Receive Date: 20170817
  Receipt Date: 20170817
  Transmission Date: 20171127
  Serious: Yes (Hospitalization)
  Sender: FDA-Public Use
  Company Number: None

PATIENT
  Age: 66 Year
  Sex: Male
  Weight: 118.6 kg

DRUGS (1)
  1. MEMANTINE HYDROCHLORIDE. [Suspect]
     Active Substance: MEMANTINE HYDROCHLORIDE
     Dates: end: 20170518

REACTIONS (6)
  - Dysphagia [None]
  - Subarachnoid haemorrhage [None]
  - Extradural haematoma [None]
  - Contusion [None]
  - Dysarthria [None]
  - Fall [None]

NARRATIVE: CASE EVENT DATE: 20170613
